FAERS Safety Report 6685142-2 (Version None)
Quarter: 2010Q2

REPORT INFORMATION
  Report Type: 
  Country: None (occurrence: None)
  Receive Date: 20100416
  Receipt Date: 20100407
  Transmission Date: 20101027
  Serious: Yes (Other)
  Sender: FDA-Public Use
  Company Number: AU-PFIZER INC-2010044732

PATIENT

DRUGS (1)
  1. XALATAN [Suspect]

REACTIONS (1)
  - HYPERSENSITIVITY [None]
